FAERS Safety Report 10995500 (Version 9)
Quarter: 2020Q1

REPORT INFORMATION
  Report Type: Spontaneous
  Country: US (occurrence: US)
  Receive Date: 20150407
  Receipt Date: 20200224
  Transmission Date: 20200409
  Serious: No
  Sender: FDA-Public Use
  Company Number: US-PFIZER INC-2015114440

PATIENT
  Age: 55 Year
  Sex: Female

DRUGS (11)
  1. SALSALATE. [Concomitant]
     Active Substance: SALSALATE
     Dosage: 50 MG, DAILY
  2. LYRICA [Suspect]
     Active Substance: PREGABALIN
     Indication: FIBROMYALGIA
     Dosage: 150 MG, UNK
     Route: 048
     Dates: start: 2015
  3. SALSALATE. [Concomitant]
     Active Substance: SALSALATE
     Dosage: 100 MG, DAILY
  4. XANAX [Concomitant]
     Active Substance: ALPRAZOLAM
     Dosage: UNK
  5. LYRICA [Suspect]
     Active Substance: PREGABALIN
     Indication: ANXIETY
     Dosage: 100 MG, 2X/DAY (EVERY 12 HOURS)
     Route: 048
     Dates: start: 20190131
  6. NORCO [Concomitant]
     Active Substance: ACETAMINOPHEN\HYDROCODONE BITARTRATE
     Dosage: 5 DF, DAILY
  7. LYRICA [Suspect]
     Active Substance: PREGABALIN
     Indication: DEPRESSION
  8. ALPRAZOLAM. [Concomitant]
     Active Substance: ALPRAZOLAM
     Dosage: 0.5 MG, 3X/DAY
  9. SALSALATE. [Concomitant]
     Active Substance: SALSALATE
     Dosage: 500 MG, UNK
  10. CYMBALTA [Concomitant]
     Active Substance: DULOXETINE HYDROCHLORIDE
     Dosage: 30 MG, DAILY
  11. AMITRIPTYLINE [Concomitant]
     Active Substance: AMITRIPTYLINE
     Dosage: 25 MG, 1X/DAY (AT BEDTIME)

REACTIONS (4)
  - Drug ineffective [Unknown]
  - Product prescribing error [Unknown]
  - Incorrect dose administered [Unknown]
  - Stress [Unknown]

NARRATIVE: CASE EVENT DATE: 2015
